FAERS Safety Report 4994524-6 (Version None)
Quarter: 2006Q2

REPORT INFORMATION
  Report Type: 
  Country: None (occurrence: None)
  Receive Date: 20060505
  Receipt Date: 20050218
  Transmission Date: 20061013
  Serious: Yes (Hospitalization, Disabling, Other)
  Sender: FDA-Public Use
  Company Number: US-MERCK-0502USA02925

PATIENT
  Age: 55 Year
  Sex: Male
  Weight: 91 kg

DRUGS (14)
  1. VIOXX [Suspect]
     Indication: ARTHRITIS
     Route: 048
     Dates: start: 20010628, end: 20040901
  2. CEREBYX [Concomitant]
     Route: 065
  3. WELLBUTRIN SR [Concomitant]
     Route: 065
  4. PLAVIX [Concomitant]
     Route: 065
  5. FEXOFENADINE HYDROCHLORIDE [Concomitant]
     Route: 065
  6. ALBUTEROL [Concomitant]
     Route: 065
  7. LORATADINE [Concomitant]
     Route: 065
  8. ZOCOR [Concomitant]
     Route: 065
  9. CELEXA [Concomitant]
     Route: 065
  10. DOCUSATE SODIUM [Concomitant]
     Route: 065
  11. AGGRENOX [Concomitant]
     Route: 065
  12. ACIPHEX [Concomitant]
     Route: 065
  13. DILANTIN [Concomitant]
     Route: 065
  14. PROVIGIL [Concomitant]
     Route: 065

REACTIONS (26)
  - BLOOD CHOLESTEROL INCREASED [None]
  - BLOOD TRIGLYCERIDES INCREASED [None]
  - BRONCHITIS [None]
  - CEREBROVASCULAR ACCIDENT [None]
  - CHEST PAIN [None]
  - CONTUSION [None]
  - CONVULSION [None]
  - DEPRESSION [None]
  - DYSPNOEA [None]
  - FAILURE TO THRIVE [None]
  - GASTROOESOPHAGEAL REFLUX DISEASE [None]
  - GRAND MAL CONVULSION [None]
  - HEADACHE [None]
  - HYPERTENSION [None]
  - HYPOTENSION [None]
  - INJURY [None]
  - INTERVERTEBRAL DISC DISORDER [None]
  - LIPIDS INCREASED [None]
  - MASTOIDITIS [None]
  - NECK PAIN [None]
  - NON-CARDIAC CHEST PAIN [None]
  - SKIN DISCOMFORT [None]
  - SLEEP DISORDER [None]
  - SOMNOLENCE [None]
  - STRESS [None]
  - VITAMIN B12 DEFICIENCY [None]
